APPROVED DRUG PRODUCT: TALWIN COMPOUND
Active Ingredient: ASPIRIN; PENTAZOCINE HYDROCHLORIDE
Strength: 325MG;EQ 12.5MG BASE **Federal Register determination that product was not discontinued or withdrawn for safety or effectiveness reasons**
Dosage Form/Route: TABLET;ORAL
Application: N016891 | Product #001
Applicant: SANOFI AVENTIS US LLC
Approved: Approved Prior to Jan 1, 1982 | RLD: Yes | RS: No | Type: DISCN